FAERS Safety Report 16838420 (Version 1)
Quarter: 2019Q3

REPORT INFORMATION
  Report Type: Spontaneous
  Country: US (occurrence: US)
  Receive Date: 20190923
  Receipt Date: 20190923
  Transmission Date: 20191005
  Serious: No
  Sender: FDA-Public Use
  Company Number: US-ALLERGAN-1906020US

PATIENT
  Age: 90 Year
  Sex: Female
  Weight: 48.07 kg

DRUGS (3)
  1. ZENPEP [Suspect]
     Active Substance: PANCRELIPASE AMYLASE\PANCRELIPASE LIPASE\PANCRELIPASE PROTEASE
     Indication: PANCREATIC FAILURE
     Dosage: 10,000 UNITS PER PILL, 2 WITH EACH MEAL
     Route: 048
  2. INSULIN [Concomitant]
     Active Substance: INSULIN NOS
     Indication: DIABETES MELLITUS
  3. STEROID [Concomitant]
     Active Substance: UNSPECIFIED INGREDIENT
     Indication: DERMATOMYOSITIS

REACTIONS (1)
  - Gout [Unknown]
